FAERS Safety Report 17407889 (Version 1)
Quarter: 2020Q1

REPORT INFORMATION
  Report Type: Spontaneous
  Country: CA (occurrence: CA)
  Receive Date: 20200212
  Receipt Date: 20200212
  Transmission Date: 20200409
  Serious: Yes (Hospitalization)
  Sender: FDA-Public Use
  Company Number: NVSC2020CA032490

PATIENT
  Age: 48 Year
  Sex: Female

DRUGS (6)
  1. DESFERAL [Suspect]
     Active Substance: DEFEROXAMINE MESYLATE
     Indication: IRON OVERLOAD
     Dosage: 14 G
     Route: 042
  2. DEFEROXAMINE MESILATE [Suspect]
     Active Substance: DEFEROXAMINE MESYLATE
     Indication: CONGENITAL APLASTIC ANAEMIA
     Route: 042
  3. DESFERAL [Suspect]
     Active Substance: DEFEROXAMINE MESYLATE
     Indication: CONGENITAL APLASTIC ANAEMIA
     Route: 030
  4. EXJADE [Suspect]
     Active Substance: DEFERASIROX
     Indication: CONGENITAL APLASTIC ANAEMIA
     Route: 048
  5. DEFERASIROX. [Suspect]
     Active Substance: DEFERASIROX
     Dosage: 900 MG, QD
     Route: 048
  6. DEFERASIROX. [Suspect]
     Active Substance: DEFERASIROX
     Indication: CONGENITAL APLASTIC ANAEMIA
     Dosage: 1260 MG
     Route: 048

REACTIONS (8)
  - Drug intolerance [Unknown]
  - Abdominal discomfort [Unknown]
  - Liver iron concentration increased [Unknown]
  - Serum ferritin increased [Unknown]
  - Malaise [Unknown]
  - Memory impairment [Unknown]
  - Bacterial infection [Unknown]
  - Neoplasm [Unknown]
